FAERS Safety Report 10552757 (Version 1)
Quarter: 2014Q4

REPORT INFORMATION
  Report Type: Spontaneous
  Country: US (occurrence: US)
  Receive Date: 20141029
  Receipt Date: 20141029
  Transmission Date: 20150529
  Serious: Yes (Hospitalization)
  Sender: FDA-Public Use
  Company Number: US-PURDUE-USA-2014-0118219

PATIENT
  Age: 83 Year
  Sex: Male

DRUGS (2)
  1. SENOKOT-S [Suspect]
     Active Substance: DOCUSATE SODIUM\SENNOSIDES
     Indication: CONSTIPATION
     Dosage: 2 TABLET, SINGLE
     Route: 048
     Dates: start: 20141012, end: 201410
  2. SENOKOT-S [Suspect]
     Active Substance: DOCUSATE SODIUM\SENNOSIDES
     Dosage: 2 TABLET, SINGLE
     Route: 048
     Dates: start: 20141012, end: 20141012

REACTIONS (5)
  - Pain [Unknown]
  - Flatulence [Unknown]
  - Drug effect decreased [Unknown]
  - Large intestinal obstruction [Unknown]
  - Drug ineffective [Unknown]

NARRATIVE: CASE EVENT DATE: 20141012
